FAERS Safety Report 8166692-9 (Version None)
Quarter: 2012Q1

REPORT INFORMATION
  Report Type: 
  Country: None (occurrence: None)
  Receive Date: 20120227
  Receipt Date: 20120220
  Transmission Date: 20120608
  Serious: Yes (Other)
  Sender: FDA-Public Use
  Company Number: US-ROXANE LABORATORIES, INC.-2012-RO-00685RO

PATIENT
  Age: 4 Year
  Sex: Male

DRUGS (4)
  1. DIGOXIN [Suspect]
     Route: 013
  2. DIGOXIN [Suspect]
     Route: 013
  3. DIGOXIN [Suspect]
     Route: 048
  4. DIGOXIN [Suspect]
     Indication: RETINOBLASTOMA
     Route: 013

REACTIONS (1)
  - DRUG INEFFECTIVE FOR UNAPPROVED INDICATION [None]
